FAERS Safety Report 8184054-5 (Version None)
Quarter: 2012Q1

REPORT INFORMATION
  Report Type: 
  Country: None (occurrence: None)
  Receive Date: 20120305
  Receipt Date: 20120227
  Transmission Date: 20120608
  Serious: Yes (Death, Other)
  Sender: FDA-Public Use
  Company Number: CHPA2012US003924

PATIENT
  Age: 41 Year
  Sex: Female

DRUGS (4)
  1. TRAMADOL HCL [Suspect]
     Dosage: UNK,UNK
  2. HEROIN [Suspect]
     Dosage: UNK,UNK
  3. DIPHENHYDRAMINE HCL [Suspect]
     Dosage: UNK, UNK
  4. SERTRALINE HYDROCHLORIDE [Suspect]
     Dosage: UNK,UNK

REACTIONS (2)
  - DEATH [None]
  - CARDIO-RESPIRATORY ARREST [None]
